FAERS Safety Report 9096441 (Version 1)
Quarter: 2013Q1

REPORT INFORMATION
  Report Type: Spontaneous
  Country: FR (occurrence: None)
  Receive Date: 20130124
  Receipt Date: 20130124
  Transmission Date: 20140127
  Serious: Yes (Hospitalization)
  Sender: FDA-Public Use
  Company Number: 7186107

PATIENT
  Age: 53 Year
  Sex: Female

DRUGS (4)
  1. LEVOTHYROX (LEVOTHYROXINE SODIUM) INFUSION [Suspect]
     Indication: SUICIDE ATTEMPT
     Route: 048
     Dates: start: 201301, end: 201301
  2. PARACETAMOL (PARACETAMOL) [Suspect]
     Indication: SUICIDE ATTEMPT
     Dates: start: 201301, end: 201301
  3. DIFFU K [Suspect]
     Indication: SUICIDE ATTEMPT
     Dates: start: 201301, end: 201301
  4. LASILIX (FUROSEMIDE) [Suspect]
     Indication: SUICIDE ATTEMPT
     Dates: start: 201301, end: 201301

REACTIONS (4)
  - Tachycardia [None]
  - Pyrexia [None]
  - Intentional overdose [None]
  - Suicide attempt [None]
